FAERS Safety Report 4662551-4 (Version None)
Quarter: 2005Q2

REPORT INFORMATION
  Report Type: 
  Country: None (occurrence: None)
  Receive Date: 20050516
  Receipt Date: 20050516
  Transmission Date: 20051028
  Serious: Yes (Other)
  Sender: FDA-Public Use
  Company Number: None

PATIENT
  Age: 49 Year
  Sex: Female

DRUGS (25)
  1. ULTANE [Suspect]
     Dates: start: 20040725, end: 20040723
  2. ALLEGRA [Concomitant]
  3. NASONEX [Concomitant]
  4. TUMS/CALCIUM CARBONATE [Concomitant]
  5. MILK OF MAGNESIA [Concomitant]
  6. PEPCID [Concomitant]
  7. PROTONIX [Concomitant]
  8. COMPAZINE [Concomitant]
  9. FIBERCON [Concomitant]
  10. HYDROCODONE BITARTRATE [Concomitant]
  11. IBUPROFEN [Concomitant]
  12. VERSED [Concomitant]
  13. FENTANYL [Concomitant]
  14. PROPOFOL [Concomitant]
  15. ZOFRAN [Concomitant]
  16. NAPROSYN [Concomitant]
  17. ANCEF [Concomitant]
  18. ATARAX [Concomitant]
  19. ACETAMINOPHEN [Concomitant]
  20. MAGNESIUM [Concomitant]
  21. GLUCOSAMINE CHONDROITIN [Concomitant]
  22. ACIDOPHILIOUS [Concomitant]
  23. IRON [Concomitant]
  24. CALCIUM GLUCONATE [Concomitant]
  25. MULTI-VITAMINS [Concomitant]

REACTIONS (5)
  - DYSPEPSIA [None]
  - HEPATITIS [None]
  - IRON DEFICIENCY [None]
  - POLYP [None]
  - URINARY BLADDER POLYP [None]
